FAERS Safety Report 4347668-6 (Version None)
Quarter: 2004Q1

REPORT INFORMATION
  Report Type: 
  Country: None (occurrence: None)
  Receive Date: 20040325
  Receipt Date: 20040128
  Transmission Date: 20041129
  Serious: No
  Sender: FDA-Public Use
  Company Number: USA040157570

PATIENT
  Age: 83 Year
  Sex: Female

DRUGS (7)
  1. FORTEO [Suspect]
     Indication: OSTEOPOROSIS
     Dosage: 20 UG/DAY
  2. METOPROLOL [Concomitant]
  3. ZOLOFT [Concomitant]
  4. PRAVACHOL [Concomitant]
  5. SYNTHROID [Concomitant]
  6. WELLBUTRIN [Concomitant]
  7. .. [Suspect]

REACTIONS (4)
  - BALANCE DISORDER [None]
  - CONSTIPATION [None]
  - DIFFICULTY IN WALKING [None]
  - PAIN IN EXTREMITY [None]
